FAERS Safety Report 21385190 (Version 2)
Quarter: 2023Q4

REPORT INFORMATION
  Report Type: Report from Study
  Country: GB (occurrence: GB)
  Receive Date: 20220928
  Receipt Date: 20231122
  Transmission Date: 20240110
  Serious: Yes (Hospitalization)
  Sender: FDA-Public Use
  Company Number: GB-TEVA-2022-GB-2076827

PATIENT
  Age: 54 Year
  Sex: Male

DRUGS (4)
  1. WARFARIN [Suspect]
     Active Substance: WARFARIN
     Indication: Thrombosis with thrombocytopenia syndrome
     Route: 065
  2. ASTRAZENECA COVID-19 VACCINE [Suspect]
     Active Substance: AZD-1222
     Indication: COVID-19 immunisation
     Route: 065
  3. FONDAPARINUX [Suspect]
     Active Substance: FONDAPARINUX
     Indication: Thrombosis with thrombocytopenia syndrome
     Route: 065
  4. HUMAN IMMUNOGLOBULIN G [Suspect]
     Active Substance: HUMAN IMMUNOGLOBULIN G
     Indication: Thrombosis with thrombocytopenia syndrome
     Route: 042

REACTIONS (2)
  - Thrombosis with thrombocytopenia syndrome [Recovered/Resolved]
  - Drug ineffective [Unknown]
